FAERS Safety Report 6149423-3 (Version None)
Quarter: 2009Q2

REPORT INFORMATION
  Report Type: 
  Country: None (occurrence: None)
  Receive Date: 20090409
  Receipt Date: 20090326
  Transmission Date: 20091009
  Serious: No
  Sender: FDA-Public Use
  Company Number: US-AVENTIS-200812869US

PATIENT
  Sex: Female

DRUGS (1)
  1. OPTICLIK (INSULIN INJECTION PEN) [Suspect]

REACTIONS (1)
  - DEVICE FAILURE [None]
